FAERS Safety Report 7097881-2 (Version None)
Quarter: 2010Q4

REPORT INFORMATION
  Report Type: 
  Country: None (occurrence: None)
  Receive Date: 20101112
  Receipt Date: 20101029
  Transmission Date: 20110411
  Serious: No
  Sender: FDA-Public Use
  Company Number: KR-JNJFOC-20101100840

PATIENT
  Age: 79 Year
  Sex: Female

DRUGS (1)
  1. DURAGESIC-100 [Suspect]
     Indication: PAIN MANAGEMENT
     Route: 062

REACTIONS (4)
  - DRUG DOSE OMISSION [None]
  - NAUSEA [None]
  - PYREXIA [None]
  - SOMNOLENCE [None]
